FAERS Safety Report 5655047-4 (Version None)
Quarter: 2008Q1

REPORT INFORMATION
  Report Type: 
  Country: None (occurrence: None)
  Receive Date: 20080307
  Receipt Date: 20071029
  Transmission Date: 20080703
  Serious: No
  Sender: FDA-Public Use
  Company Number: A0691480A

PATIENT
  Age: 56 Year
  Sex: Male

DRUGS (1)
  1. REQUIP [Suspect]
     Indication: RESTLESS LEGS SYNDROME
     Dosage: 2MG UNKNOWN
     Route: 048

REACTIONS (5)
  - ADVERSE DRUG REACTION [None]
  - FEELING ABNORMAL [None]
  - NAUSEA [None]
  - POISONING [None]
  - THERAPEUTIC RESPONSE DECREASED [None]
